FAERS Safety Report 12419549 (Version 1)
Quarter: 2016Q2

REPORT INFORMATION
  Report Type: Spontaneous
  Country: US (occurrence: US)
  Receive Date: 20160531
  Receipt Date: 20160531
  Transmission Date: 20160815
  Serious: No
  Sender: FDA-Public Use
  Company Number: US-VERTEX PHARMACEUTICALS-2016-002972

PATIENT
  Sex: Female

DRUGS (5)
  1. ORKAMBI [Suspect]
     Active Substance: IVACAFTOR\LUMACAFTOR
     Indication: CYSTIC FIBROSIS
     Dosage: 400-250 MG, BID
     Route: 048
     Dates: start: 20151201
  2. ORKAMBI [Suspect]
     Active Substance: IVACAFTOR\LUMACAFTOR
     Dosage: 1 DF, QD
     Route: 048
  3. TESSALON [Concomitant]
     Active Substance: BENZONATATE
     Dosage: 100 MG, UNK
  4. LINEZOLID. [Concomitant]
     Active Substance: LINEZOLID
     Dosage: 600 MG, UNK
  5. ORKAMBI [Suspect]
     Active Substance: IVACAFTOR\LUMACAFTOR
     Dosage: 400-250 MG, BID
     Route: 048
     Dates: start: 20160201

REACTIONS (1)
  - Respiratory disorder [Recovering/Resolving]
